FAERS Safety Report 5362488-1 (Version None)
Quarter: 2007Q2

REPORT INFORMATION
  Report Type: 
  Country: None (occurrence: None)
  Receive Date: 20070619
  Receipt Date: 20070607
  Transmission Date: 20071010
  Serious: Yes (Other)
  Sender: FDA-Public Use
  Company Number: JP-ROCHE-493999

PATIENT
  Age: 7 Year
  Sex: Male
  Weight: 30 kg

DRUGS (4)
  1. TAMIFLU [Suspect]
     Dosage: FORM: DRY SYRUP
     Route: 048
     Dates: start: 20070414, end: 20070414
  2. TAMIFLU [Suspect]
     Dosage: FORM: DRY SYRUP
     Route: 048
     Dates: start: 20070415, end: 20070415
  3. ACETAMINOPHEN [Suspect]
     Route: 048
     Dates: start: 20070415, end: 20070416
  4. ACETAMINOPHEN [Suspect]
     Route: 048
     Dates: start: 20070415, end: 20070416

REACTIONS (4)
  - ABNORMAL BEHAVIOUR [None]
  - AMNESIA [None]
  - PHOTOPHOBIA [None]
  - SPEECH DISORDER [None]
